FAERS Safety Report 24223960 (Version 1)
Quarter: 2024Q3

REPORT INFORMATION
  Report Type: Spontaneous
  Country: US (occurrence: None)
  Receive Date: 20240817
  Receipt Date: 20240817
  Transmission Date: 20241017
  Serious: Yes (Hospitalization)
  Sender: Public
  Company Number: None

PATIENT
  Age: 40 Year
  Sex: Female
  Weight: 67.5 kg

DRUGS (7)
  1. COMPAZINE [Suspect]
     Active Substance: PROCHLORPERAZINE MALEATE
     Indication: Migraine
     Dosage: OTHER FREQUENCY : ONE TIME;?
     Route: 048
     Dates: start: 20240815, end: 20240815
  2. IBUPROFEN [Concomitant]
  3. Kyleena IUD [Concomitant]
  4. Zofran [Concomitant]
  5. Elavil [Concomitant]
  6. ajovy [Concomitant]
  7. Imitrex [Concomitant]

REACTIONS (8)
  - Mental disorder [None]
  - Suffocation feeling [None]
  - Claustrophobia [None]
  - Restlessness [None]
  - Agitation [None]
  - Cerebrovascular accident [None]
  - Magnetic resonance imaging [None]
  - Procedural complication [None]

NARRATIVE: CASE EVENT DATE: 20240815
